FAERS Safety Report 7097021-X (Version None)
Quarter: 2010Q4

REPORT INFORMATION
  Report Type: 
  Country: None (occurrence: None)
  Receive Date: 20101111
  Receipt Date: 20100415
  Transmission Date: 20110411
  Serious: Yes (Other)
  Sender: FDA-Public Use
  Company Number: US-KINGPHARMUSA00001-K201000440

PATIENT
  Age: 55 Year
  Sex: Female

DRUGS (6)
  1. EMBEDA [Suspect]
     Dosage: 80 MG, QD
     Dates: start: 20100101, end: 20100401
  2. LYRICA [Concomitant]
     Dosage: 150 MG, BID
  3. VICODIN [Concomitant]
     Dosage: 7.5 MG, QID
  4. PROZAC [Concomitant]
     Dosage: 40 MG, QD
  5. XANAX [Concomitant]
     Indication: ANXIETY
     Dosage: 0.5 MG, BID, PRN
  6. NORCO [Concomitant]
     Dosage: 10 MG, QID

REACTIONS (3)
  - LETHARGY [None]
  - RESPIRATORY DEPRESSION [None]
  - SYNCOPE [None]
